FAERS Safety Report 20685268 (Version 1)
Quarter: 2022Q2

REPORT INFORMATION
  Report Type: Spontaneous
  Country: OM (occurrence: OM)
  Receive Date: 20220407
  Receipt Date: 20220407
  Transmission Date: 20220721
  Serious: Yes (Hospitalization, Other)
  Sender: FDA-Public Use
  Company Number: OM-MLMSERVICE-20220311-3427897-1

PATIENT
  Sex: Male

DRUGS (1)
  1. OLANZAPINE [Suspect]
     Active Substance: OLANZAPINE
     Indication: Depression
     Dosage: UNK, UNKNOWN
     Route: 065

REACTIONS (2)
  - Unmasking of previously unidentified disease [Recovering/Resolving]
  - Parkinson^s disease [Recovering/Resolving]
